FAERS Safety Report 15840411 (Version 1)
Quarter: 2019Q1

REPORT INFORMATION
  Report Type: Report from Study
  Country: None (occurrence: RO)
  Receive Date: 20190118
  Receipt Date: 20190118
  Transmission Date: 20190417
  Serious: Yes (Hospitalization)
  Sender: FDA-Public Use
  Company Number: RO-ABBVIE-19S-135-2622223-00

PATIENT
  Age: 58 Year
  Sex: Female

DRUGS (14)
  1. BISOTENS [Concomitant]
     Route: 048
     Dates: start: 201812
  2. VIEKIRAX [Suspect]
     Active Substance: OMBITASVIR\PARITAPREVIR\RITONAVIR
     Indication: HEPATITIS C
     Route: 048
     Dates: start: 20181010, end: 20190101
  3. BISOTENS [Concomitant]
     Indication: HYPERTENSION
     Route: 048
  4. AMLODIPINE [Concomitant]
     Active Substance: AMLODIPINE BESYLATE
     Indication: HYPERTENSION
     Route: 048
  5. NOLIPREL [Concomitant]
     Indication: HYPERTENSION
     Route: 048
  6. NOLIPREL [Concomitant]
     Route: 048
     Dates: start: 201812
  7. EXVIERA [Suspect]
     Active Substance: DASABUVIR
     Indication: HEPATITIS C
     Route: 048
     Dates: start: 20181010, end: 20190101
  8. NITROMINT [Concomitant]
     Active Substance: NITROGLYCERIN
     Indication: HYPERTENSION
     Route: 048
  9. NITROMINT [Concomitant]
     Active Substance: NITROGLYCERIN
     Route: 048
     Dates: start: 201812
  10. ASPENTER [Concomitant]
     Active Substance: ASPIRIN
     Indication: HYPERTENSION
     Route: 048
  11. VIEKIRAX [Suspect]
     Active Substance: OMBITASVIR\PARITAPREVIR\RITONAVIR
     Indication: HEPATIC CIRRHOSIS
  12. EXVIERA [Suspect]
     Active Substance: DASABUVIR
     Indication: HEPATIC CIRRHOSIS
  13. ASPENTER [Concomitant]
     Active Substance: ASPIRIN
     Route: 048
     Dates: start: 201812
  14. GLIBOMET [Concomitant]
     Active Substance: GLYBURIDE\METFORMIN HYDROCHLORIDE
     Indication: DIABETES MELLITUS
     Route: 048

REACTIONS (5)
  - Nasopharyngitis [Recovering/Resolving]
  - Oral pain [Recovering/Resolving]
  - Blood pressure fluctuation [Recovered/Resolved]
  - Pain of skin [Recovering/Resolving]
  - Palpitations [Recovered/Resolved]

NARRATIVE: CASE EVENT DATE: 201812
